FAERS Safety Report 4448413-6 (Version None)
Quarter: 2004Q3

REPORT INFORMATION
  Report Type: 
  Country: None (occurrence: None)
  Receive Date: 20040730
  Receipt Date: 20040503
  Transmission Date: 20050211
  Serious: Yes (Hospitalization)
  Sender: FDA-Public Use
  Company Number: 2004-05-0353

PATIENT
  Age: 47 Year
  Sex: Male
  Weight: 122.0176 kg

DRUGS (4)
  1. INTRON A [Suspect]
     Indication: MALIGNANT MELANOMA
     Dosage: SEE IMAGE
     Route: 042
     Dates: start: 20040401, end: 20040412
  2. VICODIN [Concomitant]
  3. PREVACID [Concomitant]
  4. VASOTEC [Concomitant]

REACTIONS (4)
  - CATHETER RELATED INFECTION [None]
  - CHILLS [None]
  - ENTEROBACTER INFECTION [None]
  - PYREXIA [None]
